FAERS Safety Report 5585464-2 (Version None)
Quarter: 2008Q1

REPORT INFORMATION
  Report Type: 
  Country: None (occurrence: None)
  Receive Date: 20080104
  Receipt Date: 20080104
  Transmission Date: 20080703
  Serious: Yes (Life-Threatening)
  Sender: FDA-Public Use
  Company Number: None

PATIENT
  Age: 52 Year
  Sex: Female
  Weight: 58.0604 kg

DRUGS (1)
  1. BONIVA [Suspect]
     Indication: OSTEOPOROSIS
     Dosage: 150MG  1 EVERY MONTH  PO
     Route: 048
     Dates: start: 20070101, end: 20070101

REACTIONS (9)
  - ARTHRALGIA [None]
  - BACK PAIN [None]
  - BODY TEMPERATURE INCREASED [None]
  - BONE PAIN [None]
  - CHEST PAIN [None]
  - CHILLS [None]
  - DYSPHAGIA [None]
  - OEDEMA PERIPHERAL [None]
  - PAIN [None]
